FAERS Safety Report 13006213 (Version 1)
Quarter: 2016Q4

REPORT INFORMATION
  Report Type: Spontaneous
  Country: US (occurrence: US)
  Receive Date: 20161207
  Receipt Date: 20161207
  Transmission Date: 20170207
  Serious: No
  Sender: FDA-Public Use
  Company Number: None

PATIENT

DRUGS (2)
  1. GABARONE GABAPENTIN [Suspect]
     Active Substance: GABAPENTIN
  2. AMIODARONE TABLETS [Suspect]
     Active Substance: AMIODARONE

REACTIONS (3)
  - Wrong drug administered [None]
  - Transcription medication error [None]
  - Drug dispensing error [None]
